FAERS Safety Report 24147057 (Version 1)
Quarter: 2024Q3

REPORT INFORMATION
  Report Type: Spontaneous
  Country: US (occurrence: US)
  Receive Date: 20240729
  Receipt Date: 20240729
  Transmission Date: 20241016
  Serious: No
  Sender: Haleon PLC
  Company Number: US-HALEON-2189307

PATIENT

DRUGS (1)
  1. FLONASE ALLERGY RELIEF [Suspect]
     Active Substance: FLUTICASONE PROPIONATE
     Indication: Nasal turbinate hypertrophy

REACTIONS (4)
  - Paranasal sinus discomfort [Unknown]
  - Nasal congestion [Unknown]
  - Swelling [Unknown]
  - Pain [Unknown]
